FAERS Safety Report 8835041 (Version 2)
Quarter: 2012Q4

REPORT INFORMATION
  Report Type: Spontaneous
  Country: US (occurrence: None)
  Receive Date: 20121009
  Receipt Date: 20121024
  Transmission Date: 20130627
  Serious: Yes (Other)
  Sender: FDA-Public Use
  Company Number: ADR-2012-01819

PATIENT
  Sex: Male

DRUGS (3)
  1. LIORESAL [Suspect]
     Indication: SPASTICITY
     Dosage: 720 MCG/DAY
  2. LIORESAL [Suspect]
     Indication: HEAD INJURY
     Dosage: 720 MCG/DAY
  3. LIORESAL [Suspect]
     Indication: BRAIN INJURY
     Dosage: 720 MCG/DAY

REACTIONS (8)
  - Device malfunction [None]
  - Restlessness [None]
  - Agitation [None]
  - Insomnia [None]
  - Ear infection [None]
  - Incorrect dose administered by device [None]
  - Underdose [None]
  - Drug withdrawal syndrome [None]
